FAERS Safety Report 11164950 (Version 2)
Quarter: 2015Q2

REPORT INFORMATION
  Report Type: Spontaneous
  Country: JP (occurrence: JP)
  Receive Date: 20150604
  Receipt Date: 20150618
  Transmission Date: 20150821
  Serious: Yes (Other)
  Sender: FDA-Public Use
  Company Number: JP-ASTELLAS-2015JP006130AA

PATIENT
  Age: 38 Year
  Sex: Male

DRUGS (11)
  1. PROTOPIC [Suspect]
     Active Substance: TACROLIMUS
     Indication: ECZEMA
     Dosage: 1.3G, DAILY ONCE TO TWICE
     Route: 061
     Dates: start: 20140621, end: 20150227
  2. RINDERON VG [Concomitant]
     Active Substance: BETAMETHASONE VALERATE\GENTAMICIN SULFATE
     Dosage: 0.5 G, DAILY ONCE TO TWICE
     Route: 061
     Dates: start: 20140621
  3. VALTREX [Concomitant]
     Active Substance: VALACYCLOVIR HYDROCHLORIDE
     Route: 048
     Dates: start: 20040906, end: 20040911
  4. RINDERON VG [Concomitant]
     Active Substance: BETAMETHASONE VALERATE\GENTAMICIN SULFATE
     Indication: DERMATITIS ATOPIC
     Dosage: UNK UNK, UNKNOWN FREQ.
     Route: 061
  5. HIRUDOID                           /00723701/ [Concomitant]
     Indication: DERMATITIS ATOPIC
     Route: 061
  6. BESOFTEN [Concomitant]
     Active Substance: SODIUM ALGINATE
     Indication: PRODUCT USED FOR UNKNOWN INDICATION
     Route: 065
  7. PROPETO [Concomitant]
     Dosage: 0.33G, DAILY ONCE TO TWICE
     Route: 061
     Dates: start: 20140621
  8. HIRUDOID                           /00723701/ [Concomitant]
     Dosage: 1.38 G, DAILY ONCE TO TWICE
     Route: 061
     Dates: start: 20140621
  9. VALTREX [Concomitant]
     Active Substance: VALACYCLOVIR HYDROCHLORIDE
     Indication: HERPES SIMPLEX
     Route: 048
     Dates: start: 20040808, end: 20040813
  10. PROTOPIC [Suspect]
     Active Substance: TACROLIMUS
     Indication: DERMATITIS ATOPIC
     Dosage: UNK UNK, UNKNOWN FREQ.
     Route: 061
  11. PROPETO [Concomitant]
     Indication: DERMATITIS ATOPIC
     Dosage: UNK UNK, UNKNOWN FREQ.
     Route: 061

REACTIONS (1)
  - Non-Hodgkin^s lymphoma [Recovering/Resolving]

NARRATIVE: CASE EVENT DATE: 201412
